FAERS Safety Report 8131241 (Version 7)
Quarter: 2012Q4

REPORT INFORMATION
  Report Type: 
  Country: US (occurrence: US)
  Receive Date: 20110912
  Receipt Date: 20120928
  Transmission Date: 20130627
  Serious: Yes (Hospitalization, Other)
  Sender: FDA-Public Use
  Company Number: US-009507513-1109USA00864

PATIENT

DRUGS (1)
  1. FOSAMAX [Suspect]
     Indication: OSTEOPOROSIS
     Dosage: 70 mg, UNK
     Route: 048
     Dates: start: 2005, end: 201012

REACTIONS (66)
  - Femur fracture [Unknown]
  - Rib fracture [Unknown]
  - Blood cholesterol increased [Not Recovered/Not Resolved]
  - Gastrooesophageal reflux disease [Unknown]
  - Chronic obstructive pulmonary disease [Unknown]
  - Sleep apnoea syndrome [Unknown]
  - Restless legs syndrome [Unknown]
  - Knee arthroplasty [Unknown]
  - Gallbladder disorder [Unknown]
  - Tachycardia [Unknown]
  - Tachypnoea [Unknown]
  - Atrial fibrillation [Unknown]
  - Hyponatraemia [Recovered/Resolved]
  - Hypothyroidism [Unknown]
  - Bursitis [Not Recovered/Not Resolved]
  - Bronchitis [Unknown]
  - Urinary incontinence [Unknown]
  - Pain in extremity [Unknown]
  - Back pain [Unknown]
  - Radiculopathy [Unknown]
  - Seborrhoeic keratosis [Unknown]
  - Blood pressure systolic increased [Unknown]
  - Joint swelling [Unknown]
  - Hypoaesthesia [Unknown]
  - Dysphagia [Unknown]
  - Dyspnoea exertional [Unknown]
  - Cataract [Unknown]
  - Arthralgia [Unknown]
  - Fall [Unknown]
  - Anxiety [Unknown]
  - Dyslipidaemia [Unknown]
  - Muscle strain [Unknown]
  - Oedema peripheral [Unknown]
  - Skin lesion [Unknown]
  - Hyperkeratosis [Unknown]
  - Cyst [Unknown]
  - Neuropathy peripheral [Unknown]
  - Glucose tolerance impaired [Unknown]
  - Hyperosmolar state [Unknown]
  - Type 2 diabetes mellitus [Unknown]
  - Renal failure acute [Unknown]
  - Depression [Unknown]
  - Osteoarthritis [Unknown]
  - Gastrooesophageal reflux disease [Unknown]
  - Obesity [Unknown]
  - Hyperlipidaemia [Unknown]
  - Hepatic lesion [Unknown]
  - Hypertension [Unknown]
  - Fatigue [Unknown]
  - Headache [Unknown]
  - Varicose vein [Unknown]
  - Nocturia [Unknown]
  - Sinus congestion [Unknown]
  - Upper-airway cough syndrome [Unknown]
  - Dyspnoea [Unknown]
  - Wheezing [Unknown]
  - Cough [Unknown]
  - Dysphonia [Unknown]
  - Joint swelling [Unknown]
  - Muscle spasms [Unknown]
  - Diarrhoea [Unknown]
  - Constipation [Unknown]
  - Tricuspid valve incompetence [Unknown]
  - Mitral valve incompetence [Unknown]
  - Open reduction of fracture [Unknown]
  - Arteriosclerosis [Unknown]
